FAERS Safety Report 6441890-0 (Version None)
Quarter: 2009Q4

REPORT INFORMATION
  Report Type: 
  Country: None (occurrence: None)
  Receive Date: 20091112
  Receipt Date: 20091028
  Transmission Date: 20100525
  Serious: Yes (Other)
  Sender: FDA-Public Use
  Company Number: 232542J09USA

PATIENT
  Age: 35 Year
  Sex: Female
  Weight: 101 kg

DRUGS (1)
  1. REBIF [Suspect]
     Indication: MULTIPLE SCLEROSIS
     Dosage: 44 MCG, 3 IN 1 WEEKS, SUBCUTANEOUS
     Route: 058
     Dates: start: 20090330, end: 20090901

REACTIONS (8)
  - CARDIAC FLUTTER [None]
  - CHEST PAIN [None]
  - CONDITION AGGRAVATED [None]
  - DYSPNOEA [None]
  - ENLARGED UVULA [None]
  - HYPERTHYROIDISM [None]
  - SNORING [None]
  - TONSILLAR DISORDER [None]
